FAERS Safety Report 17090727 (Version 1)
Quarter: 2019Q4

REPORT INFORMATION
  Report Type: Spontaneous
  Country: US (occurrence: US)
  Receive Date: 20191031
  Receipt Date: 20191031
  Transmission Date: 20200122
  Serious: No
  Sender: FDA-Public Use
  Company Number: None

PATIENT
  Age: 62 Year
  Sex: Female

DRUGS (1)
  1. IBRANCE [Suspect]
     Active Substance: PALBOCICLIB
     Route: 048
     Dates: start: 201905

REACTIONS (5)
  - Dry skin [None]
  - Alopecia [None]
  - Memory impairment [None]
  - Stomatitis [None]
  - Dry mouth [None]

NARRATIVE: CASE EVENT DATE: 20191031
